APPROVED DRUG PRODUCT: FENTANYL CITRATE AND DROPERIDOL
Active Ingredient: DROPERIDOL; FENTANYL CITRATE
Strength: 2.5MG/ML;EQ 0.05MG BASE/ML
Dosage Form/Route: INJECTABLE;INJECTION
Application: A071982 | Product #001
Applicant: HOSPIRA INC
Approved: May 4, 1988 | RLD: No | RS: No | Type: DISCN